FAERS Safety Report 21591564 (Version 2)
Quarter: 2022Q4

REPORT INFORMATION
  Report Type: Report from Study
  Country: US (occurrence: US)
  Receive Date: 20221114
  Receipt Date: 20221203
  Transmission Date: 20230112
  Serious: Yes (Other)
  Sender: FDA-Public Use
  Company Number: US-ABBVIE-4197583

PATIENT
  Sex: Female

DRUGS (1)
  1. HUMIRA [Suspect]
     Active Substance: ADALIMUMAB
     Indication: Crohn^s disease
     Dosage: FORM STRENGTH: 40 MG, CITRATE FREE
     Route: 058

REACTIONS (9)
  - Intestinal operation [Unknown]
  - Memory impairment [Recovering/Resolving]
  - Abdominal pain upper [Unknown]
  - Stress [Recovering/Resolving]
  - Pyrexia [Unknown]
  - Crohn^s disease [Recovering/Resolving]
  - Eye disorder [Unknown]
  - Drug ineffective [Not Recovered/Not Resolved]
  - Blood iron decreased [Unknown]
